FAERS Safety Report 13243333 (Version 1)
Quarter: 2017Q1

REPORT INFORMATION
  Report Type: Spontaneous
  Country: US (occurrence: US)
  Receive Date: 20170216
  Receipt Date: 20170216
  Transmission Date: 20170428
  Serious: No
  Sender: FDA-Public Use
  Company Number: US-ALLERGAN-1677284US

PATIENT
  Sex: Female
  Weight: 72.56 kg

DRUGS (3)
  1. KRILL OIL [Concomitant]
     Active Substance: DIETARY SUPPLEMENT
     Indication: SUPPLEMENTATION THERAPY
     Route: 048
  2. LASIX [Concomitant]
     Active Substance: FUROSEMIDE
     Indication: DIURETIC THERAPY
     Dosage: 40 MG, QD
     Route: 048
     Dates: start: 20161025
  3. KYBELLA [Suspect]
     Active Substance: DEOXYCHOLIC ACID
     Indication: FAT TISSUE INCREASED
     Dosage: 4 ML, SINGLE
     Dates: start: 20161025, end: 20161025

REACTIONS (5)
  - Hypoaesthesia [Recovering/Resolving]
  - Swelling [Recovering/Resolving]
  - Speech disorder [Recovering/Resolving]
  - Nerve injury [Recovering/Resolving]
  - Lip disorder [Recovering/Resolving]
